FAERS Safety Report 4661225-3 (Version None)
Quarter: 2005Q2

REPORT INFORMATION
  Report Type: 
  Country: None (occurrence: None)
  Receive Date: 20050420
  Receipt Date: 20041102
  Transmission Date: 20051028
  Serious: Yes (Other)
  Sender: FDA-Public Use
  Company Number: 200418091US

PATIENT
  Age: 43 Year
  Sex: Female
  Weight: 48.2 kg

DRUGS (12)
  1. ALLEGRA [Suspect]
     Indication: HYPERSENSITIVITY
     Dosage: 60 MG BID
  2. ALLEGRA [Suspect]
     Indication: URTICARIA CHRONIC
     Dosage: 60 MG BID
  3. ALLEGRA [Suspect]
     Indication: HYPERSENSITIVITY
     Dosage: 60 MG BID
  4. ALLEGRA [Suspect]
     Indication: URTICARIA CHRONIC
     Dosage: 60 MG BID
  5. LORATADINE [Concomitant]
  6. LORATADINE [Suspect]
  7. ALLEGRA [Suspect]
     Indication: HYPERSENSITIVITY
     Dosage: 60 MG BID
  8. ALLEGRA [Suspect]
     Indication: URTICARIA CHRONIC
     Dosage: 60 MG BID
  9. ALLEGRA [Suspect]
     Indication: HYPERSENSITIVITY
     Dosage: 180 MG QD
  10. ALLEGRA [Suspect]
     Indication: URTICARIA CHRONIC
     Dosage: 180 MG QD
  11. . [Concomitant]
  12. . [Concomitant]

REACTIONS (3)
  - ANGIONEUROTIC OEDEMA [None]
  - OROPHARYNGEAL SWELLING [None]
  - SWOLLEN TONGUE [None]
